FAERS Safety Report 10900370 (Version 1)
Quarter: 2015Q1

REPORT INFORMATION
  Report Type: Spontaneous
  Country: US (occurrence: US)
  Receive Date: 20150310
  Receipt Date: 20150310
  Transmission Date: 20150721
  Serious: No
  Sender: FDA-Public Use
  Company Number: US-BIOGENIDEC-2015BI023595

PATIENT
  Age: 53 Year
  Sex: Female

DRUGS (7)
  1. TECFIDERA [Suspect]
     Active Substance: DIMETHYL FUMARATE
     Indication: MULTIPLE SCLEROSIS
     Route: 048
  2. CELEXA [Concomitant]
     Active Substance: CITALOPRAM HYDROBROMIDE
  3. AMLODIPINE BESY-BENAZEPRIL HCL [Concomitant]
  4. BACLOFEN. [Concomitant]
     Active Substance: BACLOFEN
  5. VOLTAREN [Concomitant]
     Active Substance: DICLOFENAC SODIUM
  6. FLAXSEED [Concomitant]
     Active Substance: FLAX SEED
  7. JUICE PLUS FIBRE [Concomitant]

REACTIONS (1)
  - Pain [Unknown]
